FAERS Safety Report 4555683-2 (Version None)
Quarter: 2005Q1

REPORT INFORMATION
  Report Type: 
  Country: None (occurrence: None)
  Receive Date: 20050119
  Receipt Date: 20050105
  Transmission Date: 20050727
  Serious: Yes (Hospitalization)
  Sender: FDA-Public Use
  Company Number: NL-JNJFOC-20050101655

PATIENT
  Sex: Male

DRUGS (4)
  1. NEOCON [Suspect]
     Route: 049
  2. PANTOZOL [Concomitant]
  3. DIPYRIDAMOL [Concomitant]
  4. HALDOL [Concomitant]

REACTIONS (4)
  - HEPATIC ENZYME INCREASED [None]
  - HEPATIC FUNCTION ABNORMAL [None]
  - MICROCYTIC ANAEMIA [None]
  - PSYCHOTIC DISORDER [None]
